FAERS Safety Report 14393564 (Version 1)
Quarter: 2018Q1

REPORT INFORMATION
  Report Type: Spontaneous
  Country: US (occurrence: US)
  Receive Date: 20180115
  Receipt Date: 20180115
  Transmission Date: 20180509
  Serious: Yes (Life-Threatening, Hospitalization)
  Sender: FDA-Public Use
  Company Number: None

PATIENT
  Age: 57 Year
  Sex: Female
  Weight: 97.8 kg

DRUGS (1)
  1. KEYTRUDA [Suspect]
     Active Substance: PEMBROLIZUMAB
     Indication: NON-SMALL CELL LUNG CANCER
     Dosage: 200 MG EVERY 21 DAYS X 2?
     Route: 041
     Dates: start: 20170315, end: 20170419

REACTIONS (5)
  - Cold agglutinins positive [None]
  - Immune thrombocytopenic purpura [None]
  - Therapy cessation [None]
  - Haemolytic anaemia [None]
  - Pneumonia [None]

NARRATIVE: CASE EVENT DATE: 20170426
